FAERS Safety Report 4860613-X (Version None)
Quarter: 2005Q4

REPORT INFORMATION
  Report Type: 
  Country: None (occurrence: None)
  Receive Date: 20051219
  Receipt Date: 20051214
  Transmission Date: 20060501
  Serious: Yes (Other)
  Sender: FDA-Public Use
  Company Number: JO-MERCK-0512USA02230

PATIENT
  Age: 9 Year
  Sex: Male

DRUGS (3)
  1. SINGULAIR [Suspect]
     Indication: ASTHMA
     Route: 048
     Dates: start: 20051211, end: 20051212
  2. [THERAPY UNSPECIFIED] [Concomitant]
     Route: 055
     Dates: start: 20041210
  3. SEREVENT [Concomitant]
     Route: 055
     Dates: start: 20041210

REACTIONS (3)
  - INSOMNIA [None]
  - RASH [None]
  - WHEEZING [None]
